FAERS Safety Report 10579050 (Version 1)
Quarter: 2014Q4

REPORT INFORMATION
  Report Type: Spontaneous
  Country: US (occurrence: US)
  Receive Date: 20141112
  Receipt Date: 20141112
  Transmission Date: 20150529
  Serious: Yes (Other)
  Sender: FDA-Public Use
  Company Number: US-ABBVIE-14P-163-1303972-00

PATIENT
  Sex: Male

DRUGS (1)
  1. ANDROGEL [Suspect]
     Active Substance: TESTOSTERONE
     Indication: PRODUCT USED FOR UNKNOWN INDICATION
     Route: 061
     Dates: end: 2013

REACTIONS (6)
  - Thrombosis [Unknown]
  - Emotional disorder [Unknown]
  - Myocardial infarction [Unknown]
  - Physical disability [Unknown]
  - Injury [Unknown]
  - Emotional distress [Unknown]
